FAERS Safety Report 26152559 (Version 1)
Quarter: 2025Q4

REPORT INFORMATION
  Report Type: Spontaneous
  Country: US (occurrence: US)
  Receive Date: 20251214
  Receipt Date: 20251214
  Transmission Date: 20260118
  Serious: No
  Sender: DIFGEN PHARMACEUTICALS LLC
  Company Number: US-Difgen-012313

PATIENT

DRUGS (5)
  1. GABAPENTIN [Concomitant]
     Active Substance: GABAPENTIN
     Indication: Product used for unknown indication
     Route: 065
  2. Cyclobenzamine [Concomitant]
     Indication: Product used for unknown indication
     Route: 065
  3. DULOXETINE [Concomitant]
     Active Substance: DULOXETINE
     Indication: Product used for unknown indication
     Route: 065
  4. BUPRENORPHINE [Suspect]
     Active Substance: BUPRENORPHINE
     Indication: Fibromyalgia
     Route: 062
     Dates: start: 2024
  5. BUPRENORPHINE [Suspect]
     Active Substance: BUPRENORPHINE
     Indication: Fibromyalgia
     Route: 062

REACTIONS (3)
  - Rash erythematous [Unknown]
  - Rash papular [Unknown]
  - Rash pruritic [Unknown]

NARRATIVE: CASE EVENT DATE: 20251001
